FAERS Safety Report 6009114-6 (Version None)
Quarter: 2008Q4

REPORT INFORMATION
  Report Type: 
  Country: None (occurrence: None)
  Receive Date: 20081216
  Receipt Date: 20081206
  Transmission Date: 20090506
  Serious: Yes (Other)
  Sender: FDA-Public Use
  Company Number: OSCN-PR-0812S-0651

PATIENT
  Sex: Male

DRUGS (1)
  1. OMNISCAN [Suspect]
     Indication: DRUG USE FOR UNKNOWN INDICATION
     Dosage: 15 ML, SINGLE DOSE, I.V.
     Route: 042
     Dates: start: 20081101, end: 20081101

REACTIONS (2)
  - NEPHROTIC SYNDROME [None]
  - RASH GENERALISED [None]
